FAERS Safety Report 19152490 (Version 2)
Quarter: 2021Q2

REPORT INFORMATION
  Report Type: Spontaneous
  Country: JP (occurrence: JP)
  Receive Date: 20210419
  Receipt Date: 20210608
  Transmission Date: 20210717
  Serious: Yes (Other)
  Sender: FDA-Public Use
  Company Number: NVSC2021JP083156

PATIENT
  Age: 29 Year
  Sex: Female

DRUGS (1)
  1. NEORAL [Suspect]
     Active Substance: CYCLOSPORINE
     Indication: PUSTULAR PSORIASIS
     Dosage: UNK
     Route: 065

REACTIONS (1)
  - Peripheral T-cell lymphoma unspecified [Recovered/Resolved]
